FAERS Safety Report 5254305-5 (Version None)
Quarter: 2007Q1

REPORT INFORMATION
  Report Type: 
  Country: None (occurrence: None)
  Receive Date: 20070302
  Receipt Date: 20070219
  Transmission Date: 20070707
  Serious: Yes (Hospitalization)
  Sender: FDA-Public Use
  Company Number: 2007PK00501

PATIENT
  Age: 62 Year
  Sex: Female

DRUGS (3)
  1. SEROQUEL [Suspect]
     Route: 048
     Dates: start: 20061218, end: 20061220
  2. ZYPREXA [Suspect]
     Dosage: VELOTAB
     Route: 048
     Dates: start: 20061221, end: 20061221
  3. CIPRALEX [Concomitant]
     Route: 048
     Dates: start: 20061219, end: 20061221

REACTIONS (1)
  - FALL [None]
